FAERS Safety Report 8928071 (Version 1)
Quarter: 2012Q4

REPORT INFORMATION
  Report Type: 
  Country: US (occurrence: US)
  Receive Date: 20121128
  Receipt Date: 20121128
  Transmission Date: 20130627
  Serious: Yes (Hospitalization, Other)
  Sender: FDA-Public Use
  Company Number: US-JNJFOC-20121014340

PATIENT
  Age: 52 Year
  Sex: Female
  Weight: 104.33 kg

DRUGS (2)
  1. XARELTO [Suspect]
     Indication: VENOGRAM
     Route: 048
     Dates: start: 20121015, end: 20121019
  2. XARELTO [Suspect]
     Indication: THROMBOSIS PROPHYLAXIS
     Route: 048
     Dates: start: 20121015, end: 20121019

REACTIONS (1)
  - Rash [Recovered/Resolved]
